FAERS Safety Report 5737837-2 (Version None)
Quarter: 2008Q2

REPORT INFORMATION
  Report Type: 
  Country: None (occurrence: None)
  Receive Date: 20080512
  Receipt Date: 20080512
  Transmission Date: 20081010
  Serious: No
  Sender: FDA-Public Use
  Company Number: None

PATIENT
  Age: 67 Year
  Sex: Male
  Weight: 72.5755 kg

DRUGS (2)
  1. SERTRALINE [Suspect]
     Indication: ANXIETY DISORDER
     Dosage: 50 MG  PO (2 OF THE 25MG)
     Route: 048
     Dates: start: 20080402, end: 20080415
  2. SERTRALINE [Suspect]
     Indication: PANIC DISORDER
     Dosage: 50 MG  PO (2 OF THE 25MG)
     Route: 048
     Dates: start: 20080402, end: 20080415

REACTIONS (3)
  - ANXIETY [None]
  - CONDITION AGGRAVATED [None]
  - PHARMACEUTICAL PRODUCT COMPLAINT [None]
